FAERS Safety Report 8977145 (Version 2)
Quarter: 2012Q4

REPORT INFORMATION
  Report Type: 
  Country: US (occurrence: US)
  Receive Date: 20121220
  Receipt Date: 20121231
  Transmission Date: 20130627
  Serious: Yes (Hospitalization)
  Sender: FDA-Public Use
  Company Number: US-BIOGENIDEC-2012BI060684

PATIENT
  Age: 61 Year
  Sex: Male

DRUGS (9)
  1. AVONEX [Suspect]
     Indication: MULTIPLE SCLEROSIS
     Route: 030
     Dates: start: 1997, end: 2003
  2. AVONEX [Suspect]
     Indication: MULTIPLE SCLEROSIS
     Route: 030
     Dates: start: 2003, end: 2004
  3. AVONEX [Suspect]
     Indication: MULTIPLE SCLEROSIS
     Route: 030
     Dates: start: 20050101
  4. NAPROXEN [Concomitant]
     Indication: JOINT LOCK
     Dates: start: 1997, end: 2010
  5. NAPROXEN [Concomitant]
     Indication: ARTHRITIS
     Dates: start: 1997, end: 2010
  6. NAPROXEN [Concomitant]
     Indication: ANTIINFLAMMATORY THERAPY
     Dates: start: 1997, end: 2010
  7. NAPROXEN [Concomitant]
     Indication: JOINT LOCK
     Dates: start: 201204
  8. NAPROXEN [Concomitant]
     Indication: ARTHRITIS
     Dates: start: 201204
  9. NAPROXEN [Concomitant]
     Indication: ANTIINFLAMMATORY THERAPY
     Dates: start: 201204

REACTIONS (2)
  - Osteoarthritis [Recovered/Resolved]
  - Gait disturbance [Recovered/Resolved]
